FAERS Safety Report 4359888-5 (Version None)
Quarter: 2004Q2

REPORT INFORMATION
  Report Type: 
  Country: None (occurrence: None)
  Receive Date: 20040513
  Receipt Date: 20040430
  Transmission Date: 20050107
  Serious: Yes (Hospitalization)
  Sender: FDA-Public Use
  Company Number: 205091

PATIENT
  Age: 57 Year
  Sex: Female

DRUGS (6)
  1. MABTHERA (RITUXIMAB) CONC FOR SOLUTION FOR INFUSION [Suspect]
     Indication: NON-HODGKIN'S LYMPHOMA
     Dosage: SEE IMAGE
     Dates: start: 20040101, end: 20040201
  2. MABTHERA (RITUXIMAB) CONC FOR SOLUTION FOR INFUSION [Suspect]
     Indication: NON-HODGKIN'S LYMPHOMA
     Dosage: SEE IMAGE
     Dates: start: 20020301
  3. MABTHERA (RITUXIMAB) CONC FOR SOLUTION FOR INFUSION [Suspect]
     Indication: NON-HODGKIN'S LYMPHOMA
     Dosage: SEE IMAGE
     Dates: start: 20021001
  4. MABTHERA (RITUXIMAB) CONC FOR SOLUTION FOR INFUSION [Suspect]
     Indication: NON-HODGKIN'S LYMPHOMA
     Dosage: SEE IMAGE
     Dates: start: 20030501
  5. ANTIARRHYTHMIC NOS (ANTIARRHYTHMIC NOS) [Concomitant]
  6. BETA-BLOCKER, NOS (BETA BLOCKERS NOS) [Concomitant]

REACTIONS (13)
  - ARRHYTHMIA [None]
  - DIALYSIS [None]
  - DIARRHOEA [None]
  - HEADACHE [None]
  - INFUSION RELATED REACTION [None]
  - PULMONARY EMBOLISM [None]
  - PULMONARY VASCULITIS [None]
  - RENAL IMPAIRMENT [None]
  - RENAL VASCULITIS [None]
  - RESPIRATORY FAILURE [None]
  - THROMBOCYTOPENIA [None]
  - VASCULITIS GASTROINTESTINAL [None]
  - VENTRICULAR DYSFUNCTION [None]
